FAERS Safety Report 17843004 (Version 3)
Quarter: 2022Q1

REPORT INFORMATION
  Report Type: Spontaneous
  Country: PT (occurrence: PT)
  Receive Date: 20200530
  Receipt Date: 20220109
  Transmission Date: 20220423
  Serious: Yes (Hospitalization, Other)
  Sender: FDA-Public Use
  Company Number: PT-AZEVEDOSP-2020-00187

PATIENT
  Age: 53 Year
  Sex: Female

DRUGS (3)
  1. AZITHROMYCIN ANHYDROUS [Suspect]
     Active Substance: AZITHROMYCIN ANHYDROUS
     Indication: Respiratory tract infection
     Dosage: 500 MILLIGRAM, ONCE A DAY
     Route: 048
  2. CEFIXIME [Suspect]
     Active Substance: CEFIXIME
     Indication: Respiratory tract infection
     Dosage: 400 MILLIGRAM, ONCE A DAY
     Route: 048
  3. METHIMAZOLE [Suspect]
     Active Substance: METHIMAZOLE
     Indication: Hyperthyroidism
     Dosage: 5 MILLIGRAM, TWO TIMES A DAY
     Route: 065

REACTIONS (4)
  - Neutropenia [Recovered/Resolved]
  - Mucocutaneous candidiasis [Recovered/Resolved]
  - Drug ineffective [Unknown]
  - Treatment failure [Unknown]
